FAERS Safety Report 16597844 (Version 1)
Quarter: 2019Q3

REPORT INFORMATION
  Report Type: Spontaneous
  Country: DE (occurrence: DE)
  Receive Date: 20190719
  Receipt Date: 20190719
  Transmission Date: 20191004
  Serious: Yes (Hospitalization)
  Sender: FDA-Public Use
  Company Number: DE-PFIZER INC-2019303916

PATIENT
  Age: 49 Year
  Sex: Female

DRUGS (19)
  1. PANTOPRAZOLE [Concomitant]
     Active Substance: PANTOPRAZOLE
     Dosage: 40 MG, 0.5-0-0-0, TABLETTEN
     Route: 048
  2. CLONIDINE RETARD RATIOPHARM [Concomitant]
     Dosage: 250 MG, 0-0-1-0, RETARD-CAPSULES
     Route: 048
  3. RAPAMUNE [Suspect]
     Active Substance: SIROLIMUS
     Dosage: 6 MG, DAILY (3-0-0-0, TABLETS)
     Route: 048
  4. AMLODIPINE [Concomitant]
     Active Substance: AMLODIPINE BESYLATE
     Dosage: 5 MG, 1-0-1-0, TABLETS
     Route: 048
  5. NEBIVOLOL. [Concomitant]
     Active Substance: NEBIVOLOL
     Dosage: 5 MG, 1-0-1-0, TABLETTEN
     Route: 048
  6. NITROLINGUAL [Concomitant]
     Active Substance: NITROGLYCERIN
     Dosage: 2 HUBS, AS NEEDED, AEROSOL
     Route: 055
  7. DECORTIN H [Suspect]
     Active Substance: PREDNISOLONE
     Dosage: UNK (5 MG, 1.5-0-0-0, TABLETS)
     Route: 048
  8. CLOPIDOGREL [Concomitant]
     Active Substance: CLOPIDOGREL BISULFATE
     Dosage: 75 MG, 1-0-0-0, TABLETTEN
     Route: 048
  9. DOXAZOSIN [Concomitant]
     Active Substance: DOXAZOSIN MESYLATE
     Dosage: 4 MG, 2-0-2-0, RETARD-TABLETTEN
     Route: 048
  10. VIGANTOLETTEN [Concomitant]
     Active Substance: CHOLECALCIFEROL
     Dosage: 500 IU, 1-0-0-0, TABLETS
     Route: 048
  11. ACTRAPID [Concomitant]
     Active Substance: INSULIN HUMAN
     Dosage: 1 IU, AS PER BLOOD GLUCOSE, INJECTION/INFUSION SOLUTION
     Route: 058
  12. CARBAMAZEPIN [Concomitant]
     Active Substance: CARBAMAZEPINE
     Dosage: 200 MG, 2-0-2-0, TABLETS
     Route: 048
  13. ARANESP [Concomitant]
     Active Substance: DARBEPOETIN ALFA
     Dosage: 150 UG, SCHEME, INJECTION FOR INJECTION /INFUSION
     Route: 060
  14. TAMOXIFEN RATIOPHARM [Concomitant]
     Active Substance: TAMOXIFEN CITRATE
     Dosage: 20 MG, 0-0-1-0, TABLETS
     Route: 048
  15. MARCUMAR [Concomitant]
     Active Substance: PHENPROCOUMON
     Dosage: 3 MG, NACH INR, TABLETTEN
     Route: 048
  16. BICANORM [Concomitant]
     Active Substance: SODIUM BICARBONATE
     Dosage: 1 G, 1-1-1-1, TABLETS
     Route: 048
  17. TORASEMID [Concomitant]
     Active Substance: TORSEMIDE
     Dosage: 50 MG, 1-1-0-0, TABLETS
     Route: 048
  18. L-THYROX HEXAL [Concomitant]
     Active Substance: LEVOTHYROXINE SODIUM
     Dosage: 50 UG, 1-0-0-0, TABLETS
     Route: 048
  19. JANUVIA [Concomitant]
     Active Substance: SITAGLIPTIN PHOSPHATE
     Dosage: 25 MG, 1-0-0-0, TABLETS
     Route: 048

REACTIONS (3)
  - Pyrexia [Unknown]
  - Breast pain [Unknown]
  - Pneumonia [Unknown]
